FAERS Safety Report 6199735-2 (Version None)
Quarter: 2009Q2

REPORT INFORMATION
  Report Type: 
  Country: None (occurrence: None)
  Receive Date: 20090520
  Receipt Date: 20090520
  Transmission Date: 20091009
  Serious: Yes (Hospitalization)
  Sender: FDA-Public Use
  Company Number: None

PATIENT
  Sex: Female
  Weight: 77.3 kg

DRUGS (2)
  1. CISPLATIN [Suspect]
     Dosage: 46 MG
     Dates: end: 20090427
  2. TAXOL [Suspect]
     Dosage: 92 MG
     Dates: end: 20090427

REACTIONS (3)
  - DYSPHAGIA [None]
  - URINARY TRACT INFECTION [None]
  - VOMITING [None]
